FAERS Safety Report 9200415 (Version 1)
Quarter: 2013Q1

REPORT INFORMATION
  Report Type: Spontaneous
  Country: FR (occurrence: FR)
  Receive Date: 20130329
  Receipt Date: 20130329
  Transmission Date: 20140127
  Serious: Yes (Death, Life-Threatening, Hospitalization)
  Sender: FDA-Public Use
  Company Number: FR-BAXTER-2013BAX011123

PATIENT
  Age: 55 Year
  Sex: Female

DRUGS (9)
  1. HOLOXAN [Suspect]
     Indication: RICHTER^S SYNDROME
     Route: 042
     Dates: start: 20130223, end: 20130226
  2. CARBOPLATINE [Suspect]
     Indication: RICHTER^S SYNDROME
     Route: 042
     Dates: start: 20130223, end: 20130225
  3. ETOPOSIDE [Concomitant]
     Indication: RICHTER^S SYNDROME
     Route: 065
     Dates: start: 20130223, end: 20130225
  4. MABTHERA [Concomitant]
     Indication: RICHTER^S SYNDROME
     Route: 042
     Dates: start: 20130222, end: 20130222
  5. PIPERACILLINE/TAZOBACTAM [Concomitant]
     Indication: PRODUCT USED FOR UNKNOWN INDICATION
     Dosage: 4 G/ 500 MG
     Route: 042
  6. CIPROFLOXACIN [Concomitant]
     Indication: PRODUCT USED FOR UNKNOWN INDICATION
     Route: 065
  7. ACICLOVIR [Concomitant]
     Indication: PRODUCT USED FOR UNKNOWN INDICATION
     Route: 065
  8. BACTRIM [Concomitant]
     Indication: PRODUCT USED FOR UNKNOWN INDICATION
     Route: 065
  9. ESOMEPRAZOLE [Concomitant]
     Indication: PRODUCT USED FOR UNKNOWN INDICATION
     Route: 065

REACTIONS (6)
  - Encephalopathy [Unknown]
  - Coma [Unknown]
  - Renal failure acute [Unknown]
  - Renal tubular disorder [Unknown]
  - Bone marrow failure [Unknown]
  - Death [Fatal]
